FAERS Safety Report 5733116-8 (Version None)
Quarter: 2008Q2

REPORT INFORMATION
  Report Type: 
  Country: None (occurrence: None)
  Receive Date: 20080509
  Receipt Date: 20080429
  Transmission Date: 20081010
  Serious: Yes (Other)
  Sender: FDA-Public Use
  Company Number: US-ROCHE-544259

PATIENT
  Sex: Female

DRUGS (4)
  1. PEG-INTERFERON A-2A (RO 25-8310) [Suspect]
     Dosage: SUSPENDED TWO WEEKS AFTER START.
     Route: 065
     Dates: start: 20071101
  2. PEG-INTERFERON A-2A (RO 25-8310) [Suspect]
     Dosage: FORM: PRE-FILLED SYRINGE
     Route: 065
     Dates: start: 20080113
  3. RIBAVIRIN [Suspect]
     Dosage: SUSPENDED TWO WEEKS AFTER START.
     Route: 065
     Dates: start: 20071101
  4. RIBAVIRIN [Suspect]
     Route: 065
     Dates: start: 20080113

REACTIONS (20)
  - ABDOMINAL PAIN [None]
  - ALOPECIA [None]
  - BLOOD GLUCOSE INCREASED [None]
  - BLOOD TRIGLYCERIDES INCREASED [None]
  - DISTURBANCE IN ATTENTION [None]
  - DRY SKIN [None]
  - DYSGEUSIA [None]
  - DYSPEPSIA [None]
  - FATIGUE [None]
  - HYPOAESTHESIA [None]
  - MEMORY IMPAIRMENT [None]
  - MONOCYTE COUNT INCREASED [None]
  - NAUSEA [None]
  - NEOPLASM [None]
  - NEUTROPHIL COUNT DECREASED [None]
  - POLLAKIURIA [None]
  - RASH ERYTHEMATOUS [None]
  - RASH PRURITIC [None]
  - STOMATITIS [None]
  - WHITE BLOOD CELL COUNT DECREASED [None]
